FAERS Safety Report 8995516 (Version 1)
Quarter: 2013Q1

REPORT INFORMATION
  Report Type: Spontaneous
  Country: US (occurrence: US)
  Receive Date: 20130103
  Receipt Date: 20130103
  Transmission Date: 20140127
  Serious: No
  Sender: FDA-Public Use
  Company Number: US-ABBOTT-12P-163-0946680-00

PATIENT
  Sex: Female
  Weight: 63.56 kg

DRUGS (2)
  1. SYNTHROID [Suspect]
     Indication: THYROID NEOPLASM
     Dates: start: 1990
  2. UNSPECIFIED INGREDIENT [Concomitant]
     Indication: GLAUCOMA

REACTIONS (3)
  - Malaise [Recovered/Resolved]
  - Feeling abnormal [Recovered/Resolved]
  - Product quality issue [Unknown]
